FAERS Safety Report 7721129-6 (Version None)
Quarter: 2011Q3

REPORT INFORMATION
  Report Type: 
  Country: None (occurrence: None)
  Receive Date: 20110831
  Receipt Date: 20110822
  Transmission Date: 20111222
  Serious: Yes (Hospitalization, Other)
  Sender: FDA-Public Use
  Company Number: FR-PFIZER INC-2011177429

PATIENT
  Age: 59 Year
  Sex: Female

DRUGS (4)
  1. LEVOTHYROXINE SODIUM [Concomitant]
     Indication: HYPOTHYROIDISM
     Route: 048
  2. PIROXICAM [Concomitant]
     Indication: SPINAL OSTEOARTHRITIS
     Dosage: UNK
     Route: 048
  3. PANTOPRAZOLE SODIUM [Suspect]
     Dosage: UNK
     Dates: start: 20080220
  4. TEMISARTAN [Suspect]
     Indication: HYPERTENSION
     Route: 065

REACTIONS (6)
  - HYPONATRAEMIA [None]
  - HYPOTENSION [None]
  - HYPERHIDROSIS [None]
  - DIZZINESS [None]
  - TINNITUS [None]
  - HEADACHE [None]
